FAERS Safety Report 7655747-0 (Version None)
Quarter: 2011Q3

REPORT INFORMATION
  Report Type: 
  Country: None (occurrence: None)
  Receive Date: 20110804
  Receipt Date: 20110727
  Transmission Date: 20111222
  Serious: Yes (Hospitalization, Other)
  Sender: FDA-Public Use
  Company Number: US-BAXTER-2011BH023265

PATIENT
  Sex: Male

DRUGS (1)
  1. DIANEAL [Suspect]
     Indication: PERITONEAL DIALYSIS
     Route: 033
     Dates: end: 20110719

REACTIONS (4)
  - CELLULITIS [None]
  - ULTRAFILTRATION FAILURE [None]
  - BLOOD PRESSURE ABNORMAL [None]
  - MENTAL STATUS CHANGES [None]
